FAERS Safety Report 4614905-X (Version None)
Quarter: 2005Q1

REPORT INFORMATION
  Report Type: 
  Country: None (occurrence: None)
  Receive Date: 20050322
  Receipt Date: 20050309
  Transmission Date: 20050727
  Serious: Yes (Other)
  Sender: FDA-Public Use
  Company Number: JP-MERCK-0503USA01631

PATIENT
  Age: 32 Year
  Sex: Male

DRUGS (2)
  1. PEPCID [Suspect]
     Route: 042
     Dates: start: 20021201, end: 20030101
  2. [THERAPY UNSPECIFIED] [Suspect]
     Route: 065

REACTIONS (1)
  - RHABDOMYOLYSIS [None]
